FAERS Safety Report 14928286 (Version 1)
Quarter: 2018Q2

REPORT INFORMATION
  Report Type: Spontaneous
  Country: NL (occurrence: NL)
  Receive Date: 20180523
  Receipt Date: 20180523
  Transmission Date: 20180711
  Serious: Yes (Other)
  Sender: FDA-Public Use
  Company Number: NL-AUROBINDO-AUR-APL-2018-026797

PATIENT
  Age: 71 Year
  Sex: Male

DRUGS (8)
  1. FLUCONAZOLE HARD CAPSULES [Suspect]
     Active Substance: FLUCONAZOLE
     Dosage: 150 MG, QD
  2. CYTISINE [Concomitant]
     Active Substance: CYTISINE
     Dosage: 2000 MG, (EVERY SIS MONTHS)
     Route: 042
  3. INTERFERON GAMMA NOS [Concomitant]
     Active Substance: INTERFERON GAMMA
     Dosage: 100 PIG SUBCUTANEOUSLY THREE TIMES PER WOEK FOR ONE MONTH ()
  4. G-CSF [Concomitant]
     Active Substance: GRANULOCYTE COLONY-STIMULATING FACTOR NOS
     Indication: PRODUCT USED FOR UNKNOWN INDICATION
     Dosage: 300 MG, (THREE TIMES PER WEEK FOR ONE MONTH)
     Route: 058
  5. FLUCONAZOLE HARD CAPSULES [Suspect]
     Active Substance: FLUCONAZOLE
     Indication: OESOPHAGEAL CANDIDIASIS
     Dosage: 150 MG, QD
     Route: 065
  6. G-CSF [Concomitant]
     Active Substance: GRANULOCYTE COLONY-STIMULATING FACTOR NOS
     Dosage: 300 MG, (THREE TIMES PER WEEK FOR ONE MONTH)
     Route: 058
  7. INTERFERON GAMMA NOS [Concomitant]
     Active Substance: INTERFERON GAMMA
     Indication: PRODUCT USED FOR UNKNOWN INDICATION
     Dosage: 100 PIG SUBCUTANEOUSLY THREE TIMES PER WOEK FOR ONE MONTH
     Route: 058
  8. CYTISINE [Concomitant]
     Active Substance: CYTISINE
     Indication: PRODUCT USED FOR UNKNOWN INDICATION
     Dosage: 2000 MG, (EVERY SIS MONTHS)
     Route: 042

REACTIONS (5)
  - Inappropriate schedule of drug administration [Unknown]
  - Incorrect drug administration duration [Unknown]
  - Off label use [Unknown]
  - Pathogen resistance [Unknown]
  - Product use in unapproved indication [Unknown]
